FAERS Safety Report 16476243 (Version 1)
Quarter: 2019Q2

REPORT INFORMATION
  Report Type: Report from Study
  Country: None (occurrence: US)
  Receive Date: 20190626
  Receipt Date: 20190626
  Transmission Date: 20190711
  Serious: Yes (Life-Threatening, Hospitalization, Other)
  Sender: FDA-Public Use
  Company Number: US-ABBVIE-19K-163-2832996-00

PATIENT
  Age: 50 Year
  Sex: Female
  Weight: 54.03 kg

DRUGS (1)
  1. CREON [Suspect]
     Active Substance: PANCRELIPASE AMYLASE\PANCRELIPASE LIPASE\PANCRELIPASE PROTEASE
     Indication: PANCREATITIS CHRONIC
     Dosage: EVERY MEAL AND EVERY SNACK
     Route: 048
     Dates: start: 2015

REACTIONS (8)
  - Respiratory disorder [Recovered/Resolved]
  - Muscle atrophy [Not Recovered/Not Resolved]
  - Weight decreased [Recovered/Resolved]
  - Lipase increased [Recovered/Resolved]
  - Dehydration [Recovered/Resolved]
  - Pancreatic pseudocyst [Recovered/Resolved]
  - Chronic obstructive pulmonary disease [Recovered/Resolved]
  - Pancreatitis chronic [Recovered/Resolved]

NARRATIVE: CASE EVENT DATE: 2017
